FAERS Safety Report 5880261-2 (Version None)
Quarter: 2008Q3

REPORT INFORMATION
  Report Type: 
  Country: None (occurrence: None)
  Receive Date: 20080912
  Receipt Date: 20080820
  Transmission Date: 20090109
  Serious: No
  Sender: FDA-Public Use
  Company Number: US-BAYER-200832664NA

PATIENT
  Age: 32 Year
  Sex: Female
  Weight: 85 kg

DRUGS (5)
  1. ULTRAVIST (PHARMACY BULK) [Suspect]
     Indication: COMPUTERISED TOMOGRAM ABDOMEN
     Dosage: TOTAL DAILY DOSE: 90 ML  UNIT DOSE: 500 ML
     Route: 042
     Dates: start: 20080801, end: 20080801
  2. PROZAC [Concomitant]
  3. NASONEX [Concomitant]
  4. IMITREX [Concomitant]
  5. READI-CAT [Concomitant]
     Indication: COMPUTERISED TOMOGRAM ABDOMEN
     Route: 048
     Dates: start: 20080801, end: 20080801

REACTIONS (2)
  - NASAL CONGESTION [None]
  - SNEEZING [None]
